FAERS Safety Report 5694875-6 (Version None)
Quarter: 2008Q2

REPORT INFORMATION
  Report Type: 
  Country: None (occurrence: None)
  Receive Date: 20080404
  Receipt Date: 20080215
  Transmission Date: 20081010
  Serious: No
  Sender: FDA-Public Use
  Company Number: A0709964A

PATIENT
  Age: 59 Year
  Sex: Male

DRUGS (5)
  1. ADVAIR HFA [Suspect]
     Indication: CHRONIC OBSTRUCTIVE PULMONARY DISEASE
     Dosage: 1PUFF TWICE PER DAY
     Route: 055
     Dates: start: 20050101
  2. LIPITOR [Concomitant]
  3. CLOBETASOL PROPIONATE [Concomitant]
     Route: 061
  4. SPIRIVA [Concomitant]
  5. EYE DROPS [Concomitant]
     Route: 047

REACTIONS (1)
  - DENTAL CARIES [None]
